FAERS Safety Report 9332467 (Version 2)
Quarter: 2013Q2

REPORT INFORMATION
  Report Type: Spontaneous
  Country: BR (occurrence: BR)
  Receive Date: 20130606
  Receipt Date: 20130625
  Transmission Date: 20140414
  Serious: No
  Sender: FDA-Public Use
  Company Number: BR-BAYER-2013-069198

PATIENT
  Sex: Male

DRUGS (1)
  1. ULTRAVIST [Suspect]
     Indication: COMPUTERISED TOMOGRAM CORONARY ARTERY
     Dosage: UNK
     Route: 042
     Dates: start: 20130523, end: 20130523

REACTIONS (4)
  - Pyrexia [Recovered/Resolved]
  - Tremor [Recovered/Resolved]
  - Hyperhidrosis [Recovered/Resolved]
  - Chills [Recovered/Resolved]
